FAERS Safety Report 19377238 (Version 1)
Quarter: 2021Q2

REPORT INFORMATION
  Report Type: Spontaneous
  Country: US (occurrence: US)
  Receive Date: 20210605
  Receipt Date: 20210605
  Transmission Date: 20210717
  Serious: Yes (Hospitalization)
  Sender: FDA-Public Use
  Company Number: US-INDICUS PHARMA-000769

PATIENT
  Age: 52 Year
  Sex: Male

DRUGS (1)
  1. METFORMIN [Suspect]
     Active Substance: METFORMIN HYDROCHLORIDE
     Indication: PRODUCT USED FOR UNKNOWN INDICATION
     Dosage: TAKING 60 PILLS OF HIS 1000 MG

REACTIONS (3)
  - Hyperlactacidaemia [Unknown]
  - Intentional overdose [Unknown]
  - Metabolic acidosis [Unknown]
